FAERS Safety Report 6966080-4 (Version None)
Quarter: 2010Q3

REPORT INFORMATION
  Report Type: 
  Country: None (occurrence: None)
  Receive Date: 20100903
  Receipt Date: 20100822
  Transmission Date: 20110219
  Serious: Yes (Hospitalization, Other)
  Sender: FDA-Public Use
  Company Number: PHBS2010DE00522

PATIENT
  Sex: Male
  Weight: 132 kg

DRUGS (5)
  1. ALISKIREN ALI+ [Suspect]
     Indication: ESSENTIAL HYPERTENSION
     Dosage: 300 MG/DAY
     Route: 048
     Dates: start: 20090103, end: 20100430
  2. METOPROLOL SUCCINATE [Concomitant]
     Dosage: UNK
  3. TOREM [Concomitant]
     Dosage: UNK
  4. CALCIUM CHANNEL BLOCKERS [Concomitant]
     Dosage: UNK
  5. NITRATES [Concomitant]

REACTIONS (10)
  - ANGINA PECTORIS [None]
  - ATRIAL FIBRILLATION [None]
  - BLOOD CHOLESTEROL INCREASED [None]
  - BLOOD CREATININE INCREASED [None]
  - BLOOD GLUCOSE INCREASED [None]
  - BLOOD PRESSURE INCREASED [None]
  - C-REACTIVE PROTEIN ABNORMAL [None]
  - GLYCOSYLATED HAEMOGLOBIN INCREASED [None]
  - LOW DENSITY LIPOPROTEIN INCREASED [None]
  - TACHYARRHYTHMIA [None]
